FAERS Safety Report 22014323 (Version 3)
Quarter: 2023Q4

REPORT INFORMATION
  Report Type: Spontaneous
  Country: US (occurrence: US)
  Receive Date: 20230221
  Receipt Date: 20231221
  Transmission Date: 20240109
  Serious: Yes (Other)
  Sender: FDA-Public Use
  Company Number: US-BRISTOL-MYERS SQUIBB COMPANY-2023-024916

PATIENT
  Age: 68 Year
  Sex: Male
  Weight: 93.44 kg

DRUGS (3)
  1. ELIQUIS [Suspect]
     Active Substance: APIXABAN
     Indication: Cerebrovascular accident prophylaxis
     Route: 048
  2. SOTALOL [Concomitant]
     Active Substance: SOTALOL
     Indication: Product used for unknown indication
  3. OSTEO-BI-FLEX [Concomitant]
     Indication: Product used for unknown indication
     Dosage: OVER THE COUNTER

REACTIONS (4)
  - Hepatic cancer [Recovering/Resolving]
  - Tooth disorder [Unknown]
  - Treatment noncompliance [Unknown]
  - Blood blister [Unknown]
